FAERS Safety Report 8056972-X (Version None)
Quarter: 2012Q1

REPORT INFORMATION
  Report Type: 
  Country: None (occurrence: None)
  Receive Date: 20120119
  Receipt Date: 20120111
  Transmission Date: 20120608
  Serious: Yes (Hospitalization, Disabling)
  Sender: FDA-Public Use
  Company Number: JP-B.I. PHARMACEUTICALS,INC./RIDGEFIELD-2011-BP-26882YA

PATIENT
  Sex: Male
  Weight: 49.2 kg

DRUGS (11)
  1. CONIEL [Concomitant]
  2. MIRABEGRON [Suspect]
     Indication: HYPERTONIC BLADDER
     Dosage: 25 MG
     Route: 048
     Dates: end: 20111118
  3. PANCREAZE [Concomitant]
  4. DIART [Concomitant]
  5. ZOLPIDEM [Concomitant]
  6. TAMSULOSIN HCL [Suspect]
     Indication: BENIGN PROSTATIC HYPERPLASIA
     Dosage: 0.2 MG
     Route: 048
  7. ISOSORBIDE DINITRATE [Concomitant]
  8. AVAPRO [Concomitant]
     Dates: start: 20111127
  9. CEFAZOLIN SODIUM [Concomitant]
  10. OLMESARTAN MEDOXOMIL [Concomitant]
  11. PIOGLITAZONE HYDROCHLORIDE [Concomitant]

REACTIONS (2)
  - RENAL FAILURE ACUTE [None]
  - URINARY RETENTION [None]
